FAERS Safety Report 20673114 (Version 1)
Quarter: 2022Q2

REPORT INFORMATION
  Report Type: Spontaneous
  Country: FR (occurrence: FR)
  Receive Date: 20220405
  Receipt Date: 20220405
  Transmission Date: 20220721
  Serious: Yes (Other)
  Sender: FDA-Public Use
  Company Number: None

PATIENT
  Age: 16 Year
  Sex: Female

DRUGS (3)
  1. ONDANSETRON [Suspect]
     Active Substance: ONDANSETRON
     Indication: Prophylaxis
     Dosage: 8 MG, Q12H
     Route: 042
     Dates: start: 20220308, end: 20220311
  2. LEUCOVORIN CALCIUM [Suspect]
     Active Substance: LEUCOVORIN CALCIUM
     Indication: Prophylaxis
     Dosage: 20 MG, Q6H
     Route: 048
     Dates: start: 20220309, end: 20220311
  3. METHOTREXATE [Suspect]
     Active Substance: METHOTREXATE
     Indication: Osteosarcoma
     Dosage: 18.3 MG (12G/M?)
     Route: 042
     Dates: start: 20220308

REACTIONS (2)
  - Mucosal inflammation [Recovered/Resolved]
  - Headache [Recovered/Resolved]
